FAERS Safety Report 5711909-0 (Version None)
Quarter: 2008Q2

REPORT INFORMATION
  Report Type: 
  Country: None (occurrence: None)
  Receive Date: 20080416
  Receipt Date: 20080402
  Transmission Date: 20081010
  Serious: Yes (Life-Threatening, Hospitalization)
  Sender: FDA-Public Use
  Company Number: 8030818

PATIENT
  Age: 43 Year
  Sex: Male
  Weight: 61 kg

DRUGS (4)
  1. KEPPRA [Suspect]
     Indication: ENCEPHALITIS HERPES
     Dosage: 1500 MG 2/D PO
     Route: 048
     Dates: start: 20071101
  2. KEPPRA [Suspect]
     Indication: EPILEPSY
     Dosage: 1500 MG 2/D PO
     Route: 048
     Dates: start: 20071101
  3. UNSPECIFIED BETA-BLOCKING AGENT [Concomitant]
  4. PROTECTIVE GASTRIC DRUG [Concomitant]

REACTIONS (3)
  - GASTRIC ULCER [None]
  - OESOPHAGEAL ULCER [None]
  - OESOPHAGITIS [None]
